FAERS Safety Report 25423098 (Version 1)
Quarter: 2025Q2

REPORT INFORMATION
  Report Type: Spontaneous
  Country: US (occurrence: None)
  Receive Date: 20250610
  Receipt Date: 20250610
  Transmission Date: 20250717
  Serious: Yes (Other)
  Sender: FDA-CTU
  Company Number: None

PATIENT
  Age: 27 Year
  Sex: Male
  Weight: 92.25 kg

DRUGS (4)
  1. FLUOXETINE [Suspect]
     Active Substance: FLUOXETINE HYDROCHLORIDE
     Indication: Withdrawal syndrome
     Route: 048
     Dates: start: 20210801, end: 20230901
  2. PAXIL [Suspect]
     Active Substance: PAROXETINE HYDROCHLORIDE
  3. PROZAC [Concomitant]
     Active Substance: FLUOXETINE HYDROCHLORIDE
  4. VYVGART [Concomitant]
     Active Substance: EFGARTIGIMOD ALFA-FCAB

REACTIONS (14)
  - Electric shock sensation [None]
  - Depression [None]
  - Anxiety [None]
  - Panic attack [None]
  - Crying [None]
  - Autoimmune disorder [None]
  - Akathisia [None]
  - Cognitive disorder [None]
  - Autonomic nervous system imbalance [None]
  - Sexual dysfunction [None]
  - Photosensitivity reaction [None]
  - Hyperacusis [None]
  - Nightmare [None]
  - Withdrawal syndrome [None]

NARRATIVE: CASE EVENT DATE: 20231002
